FAERS Safety Report 8787930 (Version 1)
Quarter: 2012Q4

REPORT INFORMATION
  Report Type: Report from Study
  Country: US (occurrence: US)
  Receive Date: 20120914
  Receipt Date: 20120914
  Transmission Date: 20130627
  Serious: Yes (Death, Hospitalization)
  Sender: FDA-Public Use
  Company Number: US-ROCHE-1113613

PATIENT
  Age: 76 Year
  Sex: Female
  Weight: 94.89 kg

DRUGS (3)
  1. AVASTIN [Suspect]
     Indication: BILE DUCT CANCER
     Route: 042
     Dates: start: 20110323, end: 20120816
  2. XELODA [Suspect]
     Indication: BILE DUCT CANCER
     Route: 048
     Dates: start: 20110323, end: 20120822
  3. GEMCITABINE [Suspect]
     Indication: BILE DUCT CANCER
     Route: 042
     Dates: start: 20120323, end: 20120816

REACTIONS (4)
  - Disease progression [Fatal]
  - Sepsis [Not Recovered/Not Resolved]
  - Small intestinal obstruction [Not Recovered/Not Resolved]
  - Renal failure acute [Not Recovered/Not Resolved]
